FAERS Safety Report 9198328 (Version 1)
Quarter: 2013Q1

REPORT INFORMATION
  Report Type: Spontaneous
  Country: US (occurrence: US)
  Receive Date: 20130329
  Receipt Date: 20130329
  Transmission Date: 20140127
  Serious: Yes (Other)
  Sender: FDA-Public Use
  Company Number: US-ACCORD-016953

PATIENT
  Age: 28 Year
  Sex: Male

DRUGS (3)
  1. DOCETAXEL [Suspect]
     Indication: EWING^S SARCOMA METASTATIC
     Dosage: DOSE WAS REDUCED TO 75 MG/M2 ON CYCLE 3 DAY 08 AND LATER ON IT WAS DISCONTINUED BEFORE CYCLE 04.
  2. GEMCITABINE [Suspect]
     Indication: EWING^S SARCOMA METASTATIC
     Dosage: EXTENDED INFUSION OVER 90 MIN ON DAY 1
  3. PEGFILGRASTIM [Concomitant]
     Indication: EWING^S SARCOMA METASTATIC
     Dosage: PEGFILGRASTIM WAS USED ON DAY 9 OF EACH 21 DAY CYCLE.

REACTIONS (4)
  - Palmar-plantar erythrodysaesthesia syndrome [Recovering/Resolving]
  - Nausea [Recovering/Resolving]
  - Fatigue [Recovering/Resolving]
  - Pain [Recovering/Resolving]
